FAERS Safety Report 11252189 (Version 1)
Quarter: 2015Q3

REPORT INFORMATION
  Report Type: Spontaneous
  Country: US (occurrence: US)
  Receive Date: 20150708
  Receipt Date: 20150708
  Transmission Date: 20151125
  Serious: Yes (Hospitalization, Other)
  Sender: FDA-Public Use
  Company Number: US-ELI_LILLY_AND_COMPANY-US201209007738

PATIENT
  Age: 31 Year
  Sex: Female

DRUGS (1)
  1. PROZAC [Suspect]
     Active Substance: FLUOXETINE HYDROCHLORIDE
     Indication: DEPRESSION
     Dosage: 20 MG, QD
     Dates: start: 20120911, end: 20120911

REACTIONS (12)
  - Hallucination, visual [Unknown]
  - Fear [Unknown]
  - Aggression [Unknown]
  - Insomnia [Unknown]
  - Feeling of despair [Not Recovered/Not Resolved]
  - Agitation [Unknown]
  - Suicidal ideation [Not Recovered/Not Resolved]
  - Abnormal behaviour [Unknown]
  - Thinking abnormal [Unknown]
  - Hallucination, auditory [Unknown]
  - Gait disturbance [Unknown]
  - Hyperhidrosis [Unknown]

NARRATIVE: CASE EVENT DATE: 20120912
